FAERS Safety Report 17417255 (Version 2)
Quarter: 2020Q2

REPORT INFORMATION
  Report Type: Spontaneous
  Country: US (occurrence: US)
  Receive Date: 20200214
  Receipt Date: 20200406
  Transmission Date: 20200713
  Serious: Yes (Hospitalization, Other)
  Sender: FDA-Public Use
  Company Number: US-SAOL THERAPEUTICS-2020SAO00037

PATIENT
  Sex: Female
  Weight: 5.44 kg

DRUGS (9)
  1. NUMEROUS IV IVIG [Suspect]
     Active Substance: HUMAN IMMUNOGLOBULIN G
     Route: 042
  2. ROMIPLOSTIM [Suspect]
     Active Substance: ROMIPLOSTIM
     Dosage: 3 DOSAGES WITH ONE DOSE AT 500 ?G, ONCE
  3. SOLU-MEDROL [Suspect]
     Active Substance: METHYLPREDNISOLONE SODIUM SUCCINATE
     Dosage: HIGH DOSAGE
     Route: 042
  4. SIROLIMUS (MFR GREENSTONE) [Suspect]
     Active Substance: SIROLIMUS
     Indication: IMMUNE THROMBOCYTOPENIA
     Dosage: 1 MG, 2X/DAY, ONCE IN THE AM AND ONCE IN THE PM, 1 EVERY 12 HOURS
  5. RITUXIMAB. [Suspect]
     Active Substance: RITUXIMAB
     Dosage: 3 DOSES
  6. DEXAMETHASONE. [Suspect]
     Active Substance: DEXAMETHASONE
  7. PREDNISOLONE. [Suspect]
     Active Substance: PREDNISOLONE
     Dosage: 90 MG
  8. WINRHO SDF [Suspect]
     Active Substance: HUMAN RHO(D) IMMUNE GLOBULIN
     Indication: IMMUNE THROMBOCYTOPENIA
  9. GLIPIZIDE. [Suspect]
     Active Substance: GLIPIZIDE
     Dosage: TOOK FOR ONE WEEK

REACTIONS (8)
  - Dizziness [Unknown]
  - Anaemia [Unknown]
  - Joint swelling [Recovered/Resolved]
  - Alopecia [Recovered/Resolved]
  - Abdominal pain upper [Unknown]
  - Immune thrombocytopenia [Recovered/Resolved]
  - Diabetes mellitus [Recovering/Resolving]
  - Weight increased [Unknown]

NARRATIVE: CASE EVENT DATE: 2019
